FAERS Safety Report 4968414-9 (Version None)
Quarter: 2006Q2

REPORT INFORMATION
  Report Type: 
  Country: None (occurrence: None)
  Receive Date: 20060410
  Receipt Date: 20050825
  Transmission Date: 20061013
  Serious: Yes (Hospitalization)
  Sender: FDA-Public Use
  Company Number: US-MERCK-0508USA04200

PATIENT
  Age: 56 Year
  Sex: Male
  Weight: 121 kg

DRUGS (4)
  1. ACCUPRIL [Concomitant]
     Route: 065
  2. GLUCOVANCE [Concomitant]
     Route: 065
  3. ASPIRIN [Concomitant]
     Route: 065
  4. VIOXX [Suspect]
     Indication: ARTHRALGIA
     Route: 048
     Dates: start: 20010601, end: 20020101

REACTIONS (37)
  - ABDOMINAL PAIN UPPER [None]
  - ADJUSTMENT DISORDER [None]
  - ANAEMIA [None]
  - ANXIETY [None]
  - AORTIC VALVE INCOMPETENCE [None]
  - ASCITES [None]
  - BRONCHITIS ACUTE [None]
  - BRONCHOSPASM [None]
  - CARDIAC FAILURE [None]
  - CARDIAC FAILURE CONGESTIVE [None]
  - CARDIOMYOPATHY [None]
  - CARDIOVASCULAR DISORDER [None]
  - CEREBROVASCULAR ACCIDENT [None]
  - COGNITIVE DISORDER [None]
  - COLITIS [None]
  - EMOTIONAL DISTRESS [None]
  - FUNGAEMIA [None]
  - GASTRIC ULCER [None]
  - GENERAL PHYSICAL HEALTH DETERIORATION [None]
  - HEPATITIS [None]
  - HERPES ZOSTER DISSEMINATED [None]
  - HYPERTENSION [None]
  - ILEUS [None]
  - LUNG INFECTION [None]
  - LYMPHADENOPATHY [None]
  - MALNUTRITION [None]
  - METABOLIC ENCEPHALOPATHY [None]
  - PAIN [None]
  - PERICARDIAL EFFUSION [None]
  - PLEURAL EFFUSION [None]
  - REFUSAL OF TREATMENT BY PATIENT [None]
  - RENAL FAILURE ACUTE [None]
  - STAPHYLOCOCCAL BACTERAEMIA [None]
  - TOXIC INDUCED ENCEPHALOPATHY [None]
  - TRANSIENT ISCHAEMIC ATTACK [None]
  - VENTRICULAR DYSFUNCTION [None]
  - WRIST FRACTURE [None]
